FAERS Safety Report 9034920 (Version 1)
Quarter: 2013Q1

REPORT INFORMATION
  Report Type: Spontaneous
  Country: CA (occurrence: None)
  Receive Date: 20130116
  Receipt Date: 20130116
  Transmission Date: 20140127
  Serious: Yes (Congenital Anomaly)
  Sender: FDA-Public Use
  Company Number: 2013010057

PATIENT
  Sex: Female
  Weight: 2.72 kg

DRUGS (4)
  1. CESAMET [Suspect]
     Indication: COMPLEX REGIONAL PAIN SYNDROME
     Dosage: 0.5 MG (0.5 MG, 1 IN 1 D) TRANSPLACENTAL
     Route: 064
  2. CLONIDINE [Suspect]
     Dosage: 0.4 MG (0.2 MG, 2 IN 1 D), TRANSPLACENTAL
     Route: 064
  3. LYRICA [Suspect]
     Dosage: 300 MG (150 MG, 2 IN 1 D), TRANSPLACENTAL
     Route: 064
  4. ZYTRAM XL [Suspect]
     Dosage: 150 MG (150 MG, 1 IN 1 D), TRANSPLACENTAL
     Route: 064

REACTIONS (4)
  - Maternal drugs affecting foetus [None]
  - Spina bifida [None]
  - Lipoma [None]
  - Neural tube defect [None]
